FAERS Safety Report 25200207 (Version 3)
Quarter: 2025Q2

REPORT INFORMATION
  Report Type: Spontaneous
  Country: US (occurrence: US)
  Receive Date: 20250415
  Receipt Date: 20250605
  Transmission Date: 20250716
  Serious: No
  Sender: SANOFI AVENTIS
  Company Number: US-SA-2025SA107078

PATIENT
  Age: 89 Year
  Sex: Female

DRUGS (3)
  1. DUPIXENT [Suspect]
     Active Substance: DUPILUMAB
     Indication: Dermatitis atopic
     Route: 058
     Dates: start: 20250224, end: 20250224
  2. DUPIXENT [Suspect]
     Active Substance: DUPILUMAB
     Indication: Rash
     Dosage: 300 MG, QOW
     Route: 058
     Dates: start: 202503
  3. DUPIXENT [Suspect]
     Active Substance: DUPILUMAB
     Indication: Skin disorder

REACTIONS (9)
  - Fall [Unknown]
  - Skin haemorrhage [Not Recovered/Not Resolved]
  - Rash macular [Not Recovered/Not Resolved]
  - Skin abrasion [Unknown]
  - Skin laceration [Unknown]
  - Pruritus [Not Recovered/Not Resolved]
  - Rash [Unknown]
  - Product use in unapproved indication [Unknown]
  - Inappropriate schedule of product administration [Unknown]

NARRATIVE: CASE EVENT DATE: 20250101
